FAERS Safety Report 5951258-9 (Version None)
Quarter: 2008Q4

REPORT INFORMATION
  Report Type: 
  Country: None (occurrence: None)
  Receive Date: 20081113
  Receipt Date: 20081020
  Transmission Date: 20090506
  Serious: Yes (Other)
  Sender: FDA-Public Use
  Company Number: MX-BAYER-200820582LA

PATIENT
  Sex: Female

DRUGS (1)
  1. YASMIN [Suspect]
     Indication: CONTRACEPTION
     Route: 048

REACTIONS (5)
  - DIZZINESS [None]
  - FATIGUE [None]
  - GENITAL HAEMORRHAGE [None]
  - NAUSEA [None]
  - SOMNOLENCE [None]
